FAERS Safety Report 5165268-5 (Version None)
Quarter: 2006Q4

REPORT INFORMATION
  Report Type: 
  Country: None (occurrence: None)
  Receive Date: 20061124
  Receipt Date: 20061113
  Transmission Date: 20070319
  Serious: Yes (Other)
  Sender: FDA-Public Use
  Company Number: 2006140830

PATIENT
  Age: 36 Year
  Sex: Female

DRUGS (1)
  1. ZITHROMAX [Suspect]
     Indication: PHARYNGOLARYNGEAL PAIN
     Dosage: 250 MG (250 MG, 1 IN 1 D), ORAL
     Route: 048
     Dates: start: 20061109, end: 20061111

REACTIONS (5)
  - EAR PAIN [None]
  - MIGRAINE [None]
  - NAUSEA [None]
  - TINNITUS [None]
  - VERTIGO [None]
